FAERS Safety Report 5390020-5 (Version None)
Quarter: 2007Q3

REPORT INFORMATION
  Report Type: 
  Country: None (occurrence: None)
  Receive Date: 20070718
  Receipt Date: 20070712
  Transmission Date: 20080115
  Serious: Yes (Hospitalization, Other)
  Sender: FDA-Public Use
  Company Number: AU-AVENTIS-200716346GDDC

PATIENT
  Age: 77 Year
  Sex: Male

DRUGS (13)
  1. LANTUS [Suspect]
     Dates: start: 20061101
  2. AUTOPEN INSULIN INJECTION PEN [Suspect]
  3. METFORMIN HCL [Concomitant]
     Dosage: DOSE: UNK
  4. ADALAT [Concomitant]
     Dosage: DOSE: UNK
  5. AVAPRO [Concomitant]
     Dosage: DOSE: UNK
  6. SPIRIVA [Concomitant]
     Dosage: DOSE: UNK
  7. SERETIDE [Concomitant]
     Dosage: DOSE: UNK
  8. VENTOLINE                          /00139501/ [Concomitant]
     Dosage: DOSE: UNK
  9. FOSAMAX [Concomitant]
     Dosage: DOSE: UNK
  10. CALTRATE                           /00108001/ [Concomitant]
     Dosage: DOSE: UNK
  11. ASPIRIN [Concomitant]
     Dosage: DOSE: UNK
  12. TRAMADOL HCL [Concomitant]
     Dosage: DOSE: UNK
  13. ACETAMINOPHEN [Concomitant]
     Dosage: DOSE: UNK

REACTIONS (2)
  - HIP ARTHROPLASTY [None]
  - POST PROCEDURAL HAEMORRHAGE [None]
